FAERS Safety Report 5016438-8 (Version None)
Quarter: 2006Q2

REPORT INFORMATION
  Report Type: 
  Country: None (occurrence: None)
  Receive Date: 20060602
  Receipt Date: 20060523
  Transmission Date: 20061013
  Serious: Yes (Hospitalization, Disabling)
  Sender: FDA-Public Use
  Company Number: 2006AP02371

PATIENT
  Age: 87 Year
  Sex: Female

DRUGS (5)
  1. OMEPRAL [Suspect]
     Indication: REFLUX OESOPHAGITIS
     Route: 048
     Dates: start: 20060401
  2. NORVASC [Concomitant]
     Route: 048
  3. MUCOSTA [Concomitant]
     Route: 048
  4. KINEDAK [Concomitant]
     Route: 048
  5. VITAMIN B-12 [Concomitant]

REACTIONS (1)
  - ATRIOVENTRICULAR BLOCK COMPLETE [None]
